FAERS Safety Report 24225851 (Version 6)
Quarter: 2024Q4

REPORT INFORMATION
  Report Type: Spontaneous
  Country: FR (occurrence: FR)
  Receive Date: 20240820
  Receipt Date: 20241023
  Transmission Date: 20250114
  Serious: Yes (Other)
  Sender: GLAXOSMITHKLINE
  Company Number: None

PATIENT

DRUGS (12)
  1. FLUTICASONE FUROATE\VILANTEROL TRIFENATATE [Suspect]
     Active Substance: FLUTICASONE FUROATE\VILANTEROL TRIFENATATE
     Indication: Nasal polyps
     Dosage: 1 DF, QD
     Route: 055
  2. FLUTICASONE FUROATE\VILANTEROL TRIFENATATE [Suspect]
     Active Substance: FLUTICASONE FUROATE\VILANTEROL TRIFENATATE
     Dosage: 1 DF, QD
     Route: 055
  3. ATORVASTATIN [Suspect]
     Active Substance: ATORVASTATIN
     Indication: Dyslipidaemia
     Dosage: 1 DF, QD
     Route: 048
  4. CLOPIDOGREL HYDROCHLORIDE [Suspect]
     Active Substance: CLOPIDOGREL HYDROCHLORIDE
     Indication: Cardiovascular event prophylaxis
     Dosage: 1 DF, QD
     Route: 048
  5. EBASTINE [Suspect]
     Active Substance: EBASTINE
     Indication: Nasal polyps
     Dosage: 1 DF, QD
     Route: 055
  6. EBASTINE [Suspect]
     Active Substance: EBASTINE
     Dosage: 1 DF, QD
     Route: 055
  7. CANDESARTAN CILEXETIL [Suspect]
     Active Substance: CANDESARTAN CILEXETIL
     Indication: Hypertension
     Dosage: 1 DF, QD
     Route: 048
  8. DUPIXENT [Suspect]
     Active Substance: DUPILUMAB
     Indication: Asthma
     Dosage: 300 MILLIGRAM
     Route: 058
     Dates: start: 2021
  9. ESOMEPRAZOLE [Suspect]
     Active Substance: ESOMEPRAZOLE
     Indication: Gastrooesophageal reflux prophylaxis
     Dosage: 1 DF, QD
     Route: 048
  10. NASACORT [Suspect]
     Active Substance: TRIAMCINOLONE ACETONIDE
     Indication: Nasal polyps
     Dosage: 55 UG, QD
     Route: 045
  11. NASACORT [Suspect]
     Active Substance: TRIAMCINOLONE ACETONIDE
     Dosage: 55 UG, QD
     Route: 045
  12. NASACORT [Suspect]
     Active Substance: TRIAMCINOLONE ACETONIDE
     Dosage: 1 DF, QD
     Route: 045

REACTIONS (2)
  - Urticarial vasculitis [Not Recovered/Not Resolved]
  - Eczema [Not Recovered/Not Resolved]

NARRATIVE: CASE EVENT DATE: 20240601
